FAERS Safety Report 12627816 (Version 1)
Quarter: 2016Q3

REPORT INFORMATION
  Report Type: Spontaneous
  Country: US (occurrence: US)
  Receive Date: 20160806
  Receipt Date: 20160806
  Transmission Date: 20161109
  Serious: Yes (Other)
  Sender: FDA-Public Use
  Company Number: US-AUROBINDO-AUR-APL-2016-09965

PATIENT
  Age: 61 Year
  Sex: Male

DRUGS (3)
  1. PREDNISONE. [Suspect]
     Active Substance: PREDNISONE
     Indication: IMMUNOSUPPRESSION
     Route: 065
  2. MYCOPHENOLATE MOFETIL. [Suspect]
     Active Substance: MYCOPHENOLATE MOFETIL
     Indication: IMMUNOSUPPRESSION
  3. TACROLIMUS. [Suspect]
     Active Substance: TACROLIMUS
     Indication: IMMUNOSUPPRESSION
     Route: 065

REACTIONS (10)
  - Amnesia [Unknown]
  - Bone lesion [Unknown]
  - Facial paralysis [Unknown]
  - Confusional state [Unknown]
  - Gait disturbance [Unknown]
  - Plasma cell myeloma [Unknown]
  - Speech disorder [Unknown]
  - Vomiting [Unknown]
  - Post transplant lymphoproliferative disorder [Unknown]
  - Nausea [None]
